FAERS Safety Report 7723359-6 (Version None)
Quarter: 2011Q3

REPORT INFORMATION
  Report Type: 
  Country: None (occurrence: None)
  Receive Date: 20110901
  Receipt Date: 20110722
  Transmission Date: 20111222
  Serious: No
  Sender: FDA-Public Use
  Company Number: US-KINGPHARMUSA00001-K201100884

PATIENT
  Sex: Male

DRUGS (2)
  1. ESZOPICLONE [Suspect]
     Indication: MIDDLE INSOMNIA
     Dosage: UNK
  2. SONATA [Suspect]
     Indication: INITIAL INSOMNIA
     Dosage: 30 MG, QHS
     Route: 048

REACTIONS (1)
  - MIDDLE INSOMNIA [None]
